FAERS Safety Report 6437880-4 (Version None)
Quarter: 2009Q4

REPORT INFORMATION
  Report Type: 
  Country: None (occurrence: None)
  Receive Date: 20091112
  Receipt Date: 20081014
  Transmission Date: 20100525
  Serious: No
  Sender: FDA-Public Use
  Company Number: US-ASTRAZENECA-2009UW15506

PATIENT
  Age: 81 Year
  Sex: Male

DRUGS (3)
  1. PRILOSEC OTC [Suspect]
     Indication: HELICOBACTER INFECTION
     Dosage: 1 TABLET, 1 /DAY FOR 6 DAYS
     Route: 048
     Dates: start: 20081007, end: 20081012
  2. ZEMPLAR [Concomitant]
     Dosage: UNKNOWN
  3. OSCAL [Concomitant]
     Dosage: UNKNOWN

REACTIONS (2)
  - BURNING SENSATION [None]
  - RASH [None]
